FAERS Safety Report 14364750 (Version 5)
Quarter: 2018Q2

REPORT INFORMATION
  Report Type: Spontaneous
  Country: US (occurrence: US)
  Receive Date: 20180108
  Receipt Date: 20180412
  Transmission Date: 20180711
  Serious: Yes (Hospitalization)
  Sender: FDA-Public Use
  Company Number: US-CELGENEUS-USA-20180101522

PATIENT
  Age: 70 Year
  Sex: Female
  Weight: 45.8 kg

DRUGS (3)
  1. POMALYST [Suspect]
     Active Substance: POMALIDOMIDE
     Dosage: 3 MILLIGRAM
     Route: 048
     Dates: start: 2018, end: 20180226
  2. DARATUMUMAB [Suspect]
     Active Substance: DARATUMUMAB
     Indication: PLASMA CELL MYELOMA
     Route: 065
     Dates: start: 20171017, end: 20180219
  3. POMALYST [Suspect]
     Active Substance: POMALIDOMIDE
     Indication: PLASMA CELL MYELOMA
     Dosage: 3 MILLIGRAM
     Route: 048
     Dates: start: 20171201, end: 201801

REACTIONS (4)
  - Influenza [Recovered/Resolved]
  - Pneumocystis jirovecii infection [Recovered/Resolved]
  - Pneumonia [Recovered/Resolved]
  - Corona virus infection [Recovered/Resolved]

NARRATIVE: CASE EVENT DATE: 20180101
